FAERS Safety Report 15404520 (Version 7)
Quarter: 2019Q4

REPORT INFORMATION
  Report Type: Spontaneous
  Country: US (occurrence: US)
  Receive Date: 20180919
  Receipt Date: 20191209
  Transmission Date: 20200122
  Serious: Yes (Hospitalization)
  Sender: FDA-Public Use
  Company Number: US-ACTELION-A-NJ2018-179055

PATIENT
  Age: 49 Year
  Sex: Female
  Weight: 81.63 kg

DRUGS (9)
  1. FUROSEMIDE. [Concomitant]
     Active Substance: FUROSEMIDE
  2. SILDENAFIL. [Concomitant]
     Active Substance: SILDENAFIL
  3. OPSUMIT [Suspect]
     Active Substance: MACITENTAN
     Indication: PULMONARY HYPERTENSION
     Dosage: 10 MG, QD
     Route: 048
     Dates: start: 20170515
  4. ASPIRIN. [Concomitant]
     Active Substance: ASPIRIN
  5. ONDANSETRON [Concomitant]
     Active Substance: ONDANSETRON
  6. PROTONIX [Concomitant]
     Active Substance: PANTOPRAZOLE SODIUM
  7. SPIRONOLACTONE. [Concomitant]
     Active Substance: SPIRONOLACTONE
  8. TADALAFIL. [Concomitant]
     Active Substance: TADALAFIL
  9. REMODULIN [Concomitant]
     Active Substance: TREPROSTINIL

REACTIONS (8)
  - Abscess [Unknown]
  - Infusion site erythema [Unknown]
  - Nausea [Unknown]
  - Vomiting [Unknown]
  - Infusion site pain [Unknown]
  - Diarrhoea [Not Recovered/Not Resolved]
  - Infusion site abscess [Unknown]
  - Abscess drainage [Unknown]

NARRATIVE: CASE EVENT DATE: 20191017
